FAERS Safety Report 6962925-2 (Version None)
Quarter: 2010Q3

REPORT INFORMATION
  Report Type: 
  Country: None (occurrence: None)
  Receive Date: 20100902
  Receipt Date: 20100719
  Transmission Date: 20110219
  Serious: No
  Sender: FDA-Public Use
  Company Number: US-PFIZER INC-2010093025

PATIENT
  Sex: Male

DRUGS (7)
  1. SERTRALINE HYDROCHLORIDE [Suspect]
     Dosage: UNK
  2. PROPANTHELINE BROMIDE [Suspect]
     Indication: MUSCLE SPASMS
     Dosage: 30 MG, 4X/DAY
  3. TIZANIDINE [Concomitant]
     Dosage: 4 MG, UNK
  4. BACLOFEN [Concomitant]
     Dosage: 10 MG, UNK
  5. MULTI-VITAMINS [Concomitant]
     Dosage: UNK
  6. ACETYLSALICYLIC ACID [Concomitant]
     Dosage: UNK
  7. GLYCOPYRROLATE [Concomitant]
     Dosage: UNK

REACTIONS (2)
  - ASTHENIA [None]
  - HYPERHIDROSIS [None]
